FAERS Safety Report 25102407 (Version 1)
Quarter: 2025Q1

REPORT INFORMATION
  Report Type: Spontaneous
  Country: SD (occurrence: SD)
  Receive Date: 20250320
  Receipt Date: 20250320
  Transmission Date: 20250409
  Serious: Yes (Death, Other)
  Sender: TAKEDA
  Company Number: SD-TAKEDA-2025TUS028452

PATIENT
  Age: 8 Year

DRUGS (1)
  1. VPRIV [Suspect]
     Active Substance: VELAGLUCERASE ALFA
     Indication: Product used for unknown indication

REACTIONS (2)
  - Death [Fatal]
  - Product use issue [Unknown]
